FAERS Safety Report 13648819 (Version 1)
Quarter: 2017Q2

REPORT INFORMATION
  Report Type: Report from Study
  Country: SA (occurrence: SA)
  Receive Date: 20170613
  Receipt Date: 20170613
  Transmission Date: 20170830
  Serious: Yes (Death, Hospitalization, Other)
  Sender: FDA-Public Use
  Company Number: PHHY2017SA086670

PATIENT
  Age: 65 Year
  Sex: Male
  Weight: 46.6 kg

DRUGS (2)
  1. EVEROLIMUS [Suspect]
     Active Substance: EVEROLIMUS
     Indication: PRODUCT USED FOR UNKNOWN INDICATION
     Dosage: 10 MG, QD
     Route: 065
     Dates: start: 20160302, end: 20160906
  2. SANDOSTATIN LAR DEPOT [Suspect]
     Active Substance: OCTREOTIDE ACETATE
     Indication: PRODUCT USED FOR UNKNOWN INDICATION
     Dosage: 60 MG, QMO
     Route: 065
     Dates: start: 20101129, end: 20161113

REACTIONS (8)
  - General physical health deterioration [Unknown]
  - Disease progression [Fatal]
  - Pancreatic mass [Unknown]
  - Upper gastrointestinal haemorrhage [Recovered/Resolved]
  - Intestinal ischaemia [Unknown]
  - Enterobacter sepsis [Unknown]
  - Incorrect dose administered [Unknown]
  - Intestinal obstruction [Not Recovered/Not Resolved]

NARRATIVE: CASE EVENT DATE: 20161006
